FAERS Safety Report 6820742-8 (Version None)
Quarter: 2010Q3

REPORT INFORMATION
  Report Type: 
  Country: None (occurrence: None)
  Receive Date: 20100707
  Receipt Date: 20070511
  Transmission Date: 20110219
  Serious: No
  Sender: FDA-Public Use
  Company Number: US-PFIZER INC-2007038181

PATIENT
  Sex: Male

DRUGS (5)
  1. ZOLOFT [Suspect]
     Indication: DEPRESSION
     Dates: start: 20070423, end: 20070507
  2. FLUOROURACIL [Interacting]
     Route: 051
  3. AVASTIN [Interacting]
  4. LEUCOVORIN CALCIUM [Interacting]
  5. OXALIPLATIN [Interacting]

REACTIONS (3)
  - DIZZINESS [None]
  - DRUG INTERACTION [None]
  - LETHARGY [None]
